FAERS Safety Report 13840623 (Version 3)
Quarter: 2017Q4

REPORT INFORMATION
  Report Type: Report from Study
  Country: US (occurrence: US)
  Receive Date: 20170807
  Receipt Date: 20171013
  Transmission Date: 20180320
  Serious: Yes (Hospitalization)
  Sender: FDA-Public Use
  Company Number: US-VIFOR (INTERNATIONAL) INC.-VIT-2017-08183

PATIENT
  Age: 56 Year
  Sex: Male
  Weight: 79 kg

DRUGS (16)
  1. PROAIR HFA [Concomitant]
     Active Substance: ALBUTEROL SULFATE
  2. AMLODIPINE [Concomitant]
     Active Substance: AMLODIPINE BESYLATE
  3. ACETYLSALICYLIC ACID [Concomitant]
     Active Substance: ASPIRIN
  4. LABETALOL [Concomitant]
     Active Substance: LABETALOL\LABETALOL HYDROCHLORIDE
  5. MIDODRINE [Concomitant]
     Active Substance: MIDODRINE
  6. MINOXIDIL. [Concomitant]
     Active Substance: MINOXIDIL
  7. XANAX [Concomitant]
     Active Substance: ALPRAZOLAM
  8. GABAPENTIN. [Concomitant]
     Active Substance: GABAPENTIN
  9. OMEPRAZOLE. [Concomitant]
     Active Substance: OMEPRAZOLE
  10. FOSRENOL [Concomitant]
     Active Substance: LANTHANUM CARBONATE
  11. CLONIDINE. [Concomitant]
     Active Substance: CLONIDINE
  12. FENTANYL. [Concomitant]
     Active Substance: FENTANYL
  13. PLAVIX [Concomitant]
     Active Substance: CLOPIDOGREL BISULFATE
  14. SENNA LAXATIVE [Concomitant]
     Active Substance: SENNOSIDES
  15. VELTASSA [Suspect]
     Active Substance: PATIROMER
     Indication: HYPERKALAEMIA
     Route: 048
     Dates: start: 20161029, end: 201707
  16. GAS-X [Concomitant]
     Active Substance: DIMETHICONE

REACTIONS (3)
  - Neck surgery [Recovering/Resolving]
  - Constipation [Not Recovered/Not Resolved]
  - Blood potassium increased [Not Recovered/Not Resolved]

NARRATIVE: CASE EVENT DATE: 201707
